FAERS Safety Report 7360569-4 (Version None)
Quarter: 2011Q1

REPORT INFORMATION
  Report Type: 
  Country: None (occurrence: None)
  Receive Date: 20110309
  Receipt Date: 20110221
  Transmission Date: 20110831
  Serious: Yes (Hospitalization)
  Sender: FDA-Public Use
  Company Number: 2011MA001228

PATIENT
  Age: 76 Year
  Sex: Female

DRUGS (6)
  1. FOLIC ACID [Concomitant]
  2. ATORVASTATIN CALCIUM [Concomitant]
  3. CITALOPRAM HYDROBROMIDE [Suspect]
     Indication: DEPRESSION
     Dosage: 20 MG, QD;
  4. OLANZAPINE [Suspect]
  5. PREDNISONE [Concomitant]
  6. METHOTREXATE [Concomitant]

REACTIONS (7)
  - LONG QT SYNDROME [None]
  - SYNCOPE [None]
  - HYPOKALAEMIA [None]
  - FALL [None]
  - SUPRAVENTRICULAR EXTRASYSTOLES [None]
  - VENTRICULAR EXTRASYSTOLES [None]
  - BRADYCARDIA [None]
